FAERS Safety Report 17573208 (Version 1)
Quarter: 2020Q1

REPORT INFORMATION
  Report Type: Report from Study
  Country: IT (occurrence: IT)
  Receive Date: 20200323
  Receipt Date: 20200323
  Transmission Date: 20200409
  Serious: Yes (Hospitalization)
  Sender: FDA-Public Use
  Company Number: IT-MYLANLABS-2020M1029339

PATIENT
  Age: 65 Year
  Sex: Female
  Weight: 51 kg

DRUGS (2)
  1. RAMUCIRUMAB [Suspect]
     Active Substance: RAMUCIRUMAB
     Indication: GASTRIC CANCER
     Dosage: 408 MG, CYCLICAL (Q15)
     Route: 042
     Dates: start: 20191108
  2. PACLITAXEL. [Suspect]
     Active Substance: PACLITAXEL
     Indication: GASTRIC CANCER
     Dosage: UNK, UNKNOWN
     Route: 065
     Dates: start: 20191108

REACTIONS (2)
  - Pulmonary embolism [Recovering/Resolving]
  - Pneumonitis [Recovering/Resolving]

NARRATIVE: CASE EVENT DATE: 20200111
